FAERS Safety Report 4313750-2 (Version None)
Quarter: 2004Q1

REPORT INFORMATION
  Report Type: 
  Country: None (occurrence: None)
  Receive Date: 20040305
  Receipt Date: 20040219
  Transmission Date: 20041129
  Serious: Yes (Hospitalization)
  Sender: FDA-Public Use
  Company Number: US-SHR-04-021859

PATIENT
  Age: 49 Year
  Sex: Male

DRUGS (6)
  1. COMPATH(ALEMTUZUMAB)AMPULE [Suspect]
     Indication: UNRELATED DONOR BONE MARROW TRANSPLANTATION THERAPY
     Dosage: 10 MG/D, D -7TO-3 (TOTAL 60MG)
     Dates: start: 20030101
  2. FLUDARA [Suspect]
     Indication: UNRELATED DONOR BONE MARROW TRANSPLANTATION THERAPY
     Dosage: 25 MG/M12/D, DAY-5 TO (125 MG/M2, INTRAVENOUS)
     Route: 042
  3. GM-CSF (SARGRAMOSTIM) INJECTION [Suspect]
     Indication: UNRELATED DONOR BONE MARROW TRANSPLANTATION THERAPY
     Dosage: 250 UG, ON DAY +3 TO STABIL ANC, SUBCUTANEOUS
     Route: 058
  4. CYTOXAN [Suspect]
     Indication: UNRELATED DONOR BONE MARROW TRANSPLANTATION THERAPY
     Dosage: 45 MG/KG/DAY, DAY-4 TO -3 (90MG/KG)
  5. CYCLOSPORINE [Concomitant]
  6. MESNA [Concomitant]

REACTIONS (6)
  - BACTERIAL INFECTION [None]
  - EMPHYSEMA [None]
  - INFLUENZA [None]
  - PNEUMONIA [None]
  - RENAL FAILURE [None]
  - UPPER RESPIRATORY TRACT INFECTION [None]
